FAERS Safety Report 12530027 (Version 1)
Quarter: 2016Q3

REPORT INFORMATION
  Report Type: Spontaneous
  Country: US (occurrence: None)
  Receive Date: 20160705
  Receipt Date: 20160705
  Transmission Date: 20161109
  Serious: No
  Sender: FDA-Public Use
  Company Number: None

PATIENT
  Age: 64 Year
  Sex: Male
  Weight: 65.77 kg

DRUGS (4)
  1. OCCASIONAL MULTI VITAMIN [Concomitant]
  2. PREDNISOLONE ACETATE OPHTHALMIC 1% [Suspect]
     Active Substance: PREDNISOLONE ACETATE
  3. POTASSIUM [Concomitant]
     Active Substance: POTASSIUM
  4. OMEGA 3 [Concomitant]
     Active Substance: OMEGA-3 FATTY ACIDS

REACTIONS (4)
  - Eye irritation [None]
  - Vision blurred [None]
  - Retinal disorder [None]
  - Eye swelling [None]
